FAERS Safety Report 9947762 (Version 1)
Quarter: 2014Q1

REPORT INFORMATION
  Report Type: Report from Study
  Country: US (occurrence: US)
  Receive Date: 20140303
  Receipt Date: 20140303
  Transmission Date: 20141002
  Serious: No
  Sender: FDA-Public Use
  Company Number: US-ABBVIE-13P-163-1062417-00

PATIENT
  Sex: Male
  Weight: 122.58 kg

DRUGS (11)
  1. HUMIRA [Suspect]
     Indication: RHEUMATOID ARTHRITIS
     Dates: start: 201008, end: 20130302
  2. STEROID INJECTIONS TO THE BACK [Concomitant]
     Indication: BACK PAIN
  3. PRAVASTATIN [Concomitant]
     Indication: BLOOD CHOLESTEROL INCREASED
  4. TOPROL [Concomitant]
     Indication: HYPERTENSION
  5. TRAMADOL [Concomitant]
     Indication: PAIN
  6. BUPROPRIONE [Concomitant]
     Indication: DEPRESSION
  7. ENALAPRIL [Concomitant]
     Indication: HYPERTENSION
  8. HYDROCHLOROTHIAZIDE [Concomitant]
     Indication: HYPERTENSION
  9. AMLODIPINE [Concomitant]
     Indication: HYPERTENSION
  10. LANSOPRAZOLE [Concomitant]
     Indication: DYSPEPSIA
  11. LANSOPRAZOLE [Concomitant]
     Indication: GASTROOESOPHAGEAL REFLUX DISEASE

REACTIONS (5)
  - Abdominal pain [Not Recovered/Not Resolved]
  - Drug ineffective [Not Recovered/Not Resolved]
  - Arthralgia [Not Recovered/Not Resolved]
  - Haemochromatosis [Not Recovered/Not Resolved]
  - Sinusitis [Recovered/Resolved]
